FAERS Safety Report 6750569-7 (Version None)
Quarter: 2010Q2

REPORT INFORMATION
  Report Type: 
  Country: None (occurrence: None)
  Receive Date: 20100528
  Receipt Date: 20100528
  Transmission Date: 20101027
  Serious: Yes (Other)
  Sender: FDA-Public Use
  Company Number: None

PATIENT
  Age: 42 Year
  Sex: Female
  Weight: 53.5244 kg

DRUGS (1)
  1. TRAMADOL HCL [Suspect]
     Indication: PAIN
     Dosage: 50 MG QHS PO
     Route: 048
     Dates: start: 20070202, end: 20070204

REACTIONS (5)
  - AGITATION [None]
  - CONFUSIONAL STATE [None]
  - DEPRESSION [None]
  - MOOD ALTERED [None]
  - SUICIDAL IDEATION [None]
